FAERS Safety Report 24176775 (Version 2)
Quarter: 2024Q3

REPORT INFORMATION
  Report Type: Spontaneous
  Country: FR (occurrence: FR)
  Receive Date: 20240806
  Receipt Date: 20240904
  Transmission Date: 20241017
  Serious: Yes (Death)
  Sender: DECIPHERA PHARMACEUTICALS
  Company Number: FR-DECIPHERA PHARMACEUTICALS LLC-2024FR000458

PATIENT
  Age: 69 Year
  Sex: Female
  Weight: 55 kg

DRUGS (2)
  1. QINLOCK [Suspect]
     Active Substance: RIPRETINIB
     Indication: Gastrointestinal stromal tumour
     Dosage: 150 MILLIGRAM
     Route: 048
     Dates: start: 20230802, end: 20231017
  2. COVERAM [Concomitant]
     Active Substance: AMLODIPINE\PERINDOPRIL
     Indication: Product used for unknown indication
     Dosage: ^5/5^

REACTIONS (5)
  - Metastases to peritoneum [Fatal]
  - Decreased appetite [Unknown]
  - Asthenia [Unknown]
  - Neoplasm progression [Unknown]
  - General physical health deterioration [Unknown]

NARRATIVE: CASE EVENT DATE: 20230327
